FAERS Safety Report 18169481 (Version 3)
Quarter: 2022Q4

REPORT INFORMATION
  Report Type: Spontaneous
  Country: CA (occurrence: CA)
  Receive Date: 20200819
  Receipt Date: 20221118
  Transmission Date: 20230112
  Serious: Yes (Life-Threatening, Hospitalization, Other)
  Sender: FDA-Public Use
  Company Number: None

PATIENT
  Age: 17 Year
  Sex: Female
  Weight: 84 kg

DRUGS (21)
  1. ETOPOSIDE [Suspect]
     Active Substance: ETOPOSIDE
     Indication: Hodgkin^s disease
     Route: 042
  2. DOXORUBICIN HYDROCHLORIDE [Suspect]
     Active Substance: DOXORUBICIN HYDROCHLORIDE
     Indication: Hodgkin^s disease
     Route: 042
  3. BLEOMYCIN SULFATE [Suspect]
     Active Substance: BLEOMYCIN SULFATE
     Indication: Hodgkin^s disease
     Dosage: INTRAMUSCULAR,  POWDER FOR SOLUTION, INJECTION USP
     Route: 042
  4. CYCLOPHOSPHAMIDE [Suspect]
     Active Substance: CYCLOPHOSPHAMIDE
     Indication: Hodgkin^s disease
     Dosage: POWDER FOR SOLUTION INTRAVENOUS
     Route: 042
  5. VINCRISTINE SULFATE [Suspect]
     Active Substance: VINCRISTINE SULFATE
     Indication: Hodgkin^s disease
     Route: 042
  6. ACETAMINOPHEN [Concomitant]
     Active Substance: ACETAMINOPHEN
  7. ALTEPLASE [Concomitant]
     Active Substance: ALTEPLASE
     Dosage: LIQUID, INTRAVENOUS
  8. AMITRIPTYLINE [Concomitant]
     Active Substance: AMITRIPTYLINE
  9. DIMENHYDRINATE [Concomitant]
     Active Substance: DIMENHYDRINATE
     Dosage: LIQUID, INTRAVENOUS
  10. DIPHENHYDRAMINE [Concomitant]
     Active Substance: DIPHENHYDRAMINE
  11. DOCUSATE [Concomitant]
     Active Substance: DOCUSATE
  12. FILGRASTIM [Concomitant]
     Active Substance: FILGRASTIM
  13. GABAPENTIN [Concomitant]
     Active Substance: GABAPENTIN
  14. HEPARIN CALCIUM [Concomitant]
     Active Substance: HEPARIN CALCIUM
  15. LANSOPRAZOLE [Concomitant]
     Active Substance: LANSOPRAZOLE
     Dosage: CAPSULE (DELAYED RELEASE)
  16. LORAZEPAM [Concomitant]
     Active Substance: LORAZEPAM
  17. LUPRON DEPOT [Concomitant]
     Active Substance: LEUPROLIDE ACETATE
     Dosage: STRENGTH 3.75 MG, POWDER FOR SUSPENSION, SUSTAINED RELEASE
  18. METOCLOPRAMIDE [Concomitant]
     Active Substance: METOCLOPRAMIDE
  19. ONDANSETRON [Concomitant]
     Active Substance: ONDANSETRON
  20. PREDNISONE [Concomitant]
     Active Substance: PREDNISONE
  21. SULFAMETHOXAZOLE\TRIMETHOPRIM [Concomitant]
     Active Substance: SULFAMETHOXAZOLE\TRIMETHOPRIM

REACTIONS (2)
  - Aplastic anaemia [Recovered/Resolved]
  - Transfusion [Unknown]
